FAERS Safety Report 8462136-8 (Version None)
Quarter: 2012Q2

REPORT INFORMATION
  Report Type: 
  Country: None (occurrence: None)
  Receive Date: 20120625
  Receipt Date: 20120615
  Transmission Date: 20120825
  Serious: Yes (Life-Threatening, Hospitalization)
  Sender: FDA-Public Use
  Company Number: DK-JNJFOC-20120302050

PATIENT
  Sex: Male
  Weight: 103 kg

DRUGS (7)
  1. REMICADE [Suspect]
     Indication: COLITIS ULCERATIVE
     Route: 042
     Dates: end: 20120103
  2. REMICADE [Suspect]
     Route: 042
     Dates: start: 20120101
  3. REMICADE [Suspect]
     Route: 042
     Dates: start: 20111123, end: 20111207
  4. PREDNISOLONE [Concomitant]
     Dosage: FOR 1 WEEK HEREAFTER 50MG WITH REDUCTION TO 5MG PER WEEK TO 0.
     Route: 065
     Dates: start: 20111121
  5. IMURAN [Concomitant]
     Indication: COLITIS ULCERATIVE
     Route: 065
     Dates: start: 20120103, end: 20120119
  6. PREDNISOLONE [Concomitant]
     Route: 065
     Dates: start: 20120202, end: 20120401
  7. ASACOL [Concomitant]
     Indication: COLITIS ULCERATIVE
     Route: 065
     Dates: start: 20090806

REACTIONS (3)
  - DYSPNOEA [None]
  - HYPOXIA [None]
  - ALVEOLITIS ALLERGIC [None]
